FAERS Safety Report 17117890 (Version 1)
Quarter: 2019Q4

REPORT INFORMATION
  Report Type: Report from Study
  Country: CO (occurrence: CO)
  Receive Date: 20191205
  Receipt Date: 20191205
  Transmission Date: 20200122
  Serious: Yes (Death, Hospitalization)
  Sender: FDA-Public Use
  Company Number: CO-INCYTE CORPORATION-2017IN000242

PATIENT

DRUGS (2)
  1. JAKAVI [Suspect]
     Active Substance: RUXOLITINIB
     Dosage: 20 MG, QD
     Route: 048
     Dates: start: 20170802
  2. JAKAVI [Suspect]
     Active Substance: RUXOLITINIB
     Indication: MYELOFIBROSIS
     Dosage: 20 MG, Q12H
     Route: 048
     Dates: start: 20151201

REACTIONS (12)
  - Respiratory arrest [Fatal]
  - Myelofibrosis [Fatal]
  - Inappropriate schedule of product administration [Unknown]
  - General physical health deterioration [Unknown]
  - Swelling [Unknown]
  - Dyspnoea [Unknown]
  - Feeding disorder [Unknown]
  - Splenomegaly [Unknown]
  - Malaise [Unknown]
  - Decreased appetite [Unknown]
  - Fatigue [Unknown]
  - Inflammation [Unknown]

NARRATIVE: CASE EVENT DATE: 2017
